FAERS Safety Report 8014394-1 (Version None)
Quarter: 2011Q4

REPORT INFORMATION
  Report Type: 
  Country: None (occurrence: None)
  Receive Date: 20111229
  Receipt Date: 20111222
  Transmission Date: 20120403
  Serious: Yes (Death)
  Sender: FDA-Public Use
  Company Number: US-CELGENEUS-163-21880-11103157

PATIENT
  Sex: Female

DRUGS (7)
  1. REVLIMID [Suspect]
     Dosage: 10 MILLIGRAM
     Route: 048
     Dates: start: 20090812
  2. CALCIUM 500 [Concomitant]
     Route: 065
  3. ALPRAZOLAM [Concomitant]
     Route: 065
  4. REVLIMID [Suspect]
     Dosage: 5 MILLIGRAM
     Route: 048
     Dates: start: 20101201, end: 20111001
  5. METOPROLOL TARTRATE [Concomitant]
     Route: 065
  6. CENTRUM SILVER [Concomitant]
     Route: 065
  7. HYDROCHLOROTHIAZIDE [Concomitant]
     Route: 065

REACTIONS (1)
  - ACUTE LEUKAEMIA [None]
